FAERS Safety Report 20035805 (Version 12)
Quarter: 2023Q1

REPORT INFORMATION
  Report Type: Spontaneous
  Country: CA (occurrence: CA)
  Receive Date: 20211104
  Receipt Date: 20230128
  Transmission Date: 20230417
  Serious: Yes (Other)
  Sender: FDA-Public Use
  Company Number: CA-CELLTRION INC.-2019CA027957

PATIENT

DRUGS (34)
  1. INFLECTRA [Suspect]
     Active Substance: INFLIXIMAB-DYYB
     Indication: Colitis ulcerative
     Dosage: 5 MG/KG (ROUNDED UP OR DOWN TO CLOSEST VIAL)/0, 2, 6 THEN EVERY 8 WEEKS
     Route: 042
     Dates: start: 20191101
  2. INFLECTRA [Suspect]
     Active Substance: INFLIXIMAB-DYYB
     Dosage: 5 MG/KG (ROUNDED UP OR DOWN TO CLOSEST VIAL)/0, 2, 6, THEN EVERY 8 WEEKS
     Route: 042
     Dates: start: 20191114
  3. INFLECTRA [Suspect]
     Active Substance: INFLIXIMAB-DYYB
     Dosage: 5 MG/KG (ROUNDED UP OR DOWN TO CLOSEST VIAL)/0, 2, 6, THEN EVERY 8 WEEKS
     Route: 042
     Dates: start: 20200402
  4. INFLECTRA [Suspect]
     Active Substance: INFLIXIMAB-DYYB
     Dosage: 5 MG/KG (ROUNDED UP OR DOWN TO CLOSEST VIAL)/0, 2, 6, THEN EVERY 8 WEEKS
     Route: 042
     Dates: start: 20200529
  5. INFLECTRA [Suspect]
     Active Substance: INFLIXIMAB-DYYB
     Dosage: 5 MG/KG (ROUNDED UP OR DOWN TO CLOSEST VIAL)/0, 2, 6, THEN EVERY 8 WEEKS
     Route: 042
     Dates: start: 20200721
  6. INFLECTRA [Suspect]
     Active Substance: INFLIXIMAB-DYYB
     Dosage: 5 MG/KG (ROUNDED UP OR DOWN TO CLOSEST VIAL)/0, 2, 6, THEN EVERY 8 WEEKS
     Route: 042
     Dates: start: 20200918
  7. INFLECTRA [Suspect]
     Active Substance: INFLIXIMAB-DYYB
     Dosage: 5 MG/KG (ROUNDED UP OR DOWN TO CLOSEST VIAL)/0, 2, 6, THEN EVERY 8 WEEKS
     Route: 042
     Dates: start: 20201113
  8. INFLECTRA [Suspect]
     Active Substance: INFLIXIMAB-DYYB
     Dosage: 5 MG/KG (ROUNDED UP OR DOWN TO CLOSEST VIAL)/0, 2, 6, THEN EVERY 8 WEEKS
     Route: 042
     Dates: start: 20210108
  9. INFLECTRA [Suspect]
     Active Substance: INFLIXIMAB-DYYB
     Dosage: 5 MG/KG (ROUNDED UP OR DOWN TO CLOSEST VIAL)/0, 2, 6, THEN EVERY 8 WEEKS
     Route: 042
     Dates: start: 20210305
  10. INFLECTRA [Suspect]
     Active Substance: INFLIXIMAB-DYYB
     Dosage: 200 MG, (ROUNDED UP OR DOWN TO CLOSEST VIAL)/0, 2, 6, THEN EVERY 8 WEEKS
     Route: 042
     Dates: start: 20210507
  11. INFLECTRA [Suspect]
     Active Substance: INFLIXIMAB-DYYB
     Dosage: 200 MG, (ROUNDED UP OR DOWN TO CLOSEST VIAL)/0, 2, 6, THEN EVERY 8 WEEKS
     Route: 042
     Dates: start: 20210712
  12. INFLECTRA [Suspect]
     Active Substance: INFLIXIMAB-DYYB
     Dosage: 200 MG, (ROUNDED UP OR DOWN TO CLOSEST VIAL)/0, 2, 6, THEN EVERY 8 WEEKS
     Route: 042
     Dates: start: 20210903
  13. INFLECTRA [Suspect]
     Active Substance: INFLIXIMAB-DYYB
     Dosage: 10 MG/KG, ONE TIME DOSE
     Route: 042
     Dates: start: 20211111, end: 20211111
  14. INFLECTRA [Suspect]
     Active Substance: INFLIXIMAB-DYYB
     Dosage: 10 MG/KG, ONE TIME DOSE
     Route: 042
     Dates: start: 20211111, end: 20211111
  15. INFLECTRA [Suspect]
     Active Substance: INFLIXIMAB-DYYB
     Dosage: 5 MG/KG, EVERY 6 WEEKS
     Route: 042
     Dates: start: 20211222
  16. INFLECTRA [Suspect]
     Active Substance: INFLIXIMAB-DYYB
     Dosage: 5 MG/KG, EVERY 6 WEEKS
     Route: 042
     Dates: start: 20220427
  17. INFLECTRA [Suspect]
     Active Substance: INFLIXIMAB-DYYB
     Dosage: 5 MG/KG, EVERY 6 WEEKS
     Route: 042
     Dates: start: 20220714
  18. INFLECTRA [Suspect]
     Active Substance: INFLIXIMAB-DYYB
     Dosage: 5 MG/KG, EVERY 6 WEEKS
     Route: 042
     Dates: start: 20221005
  19. INFLECTRA [Suspect]
     Active Substance: INFLIXIMAB-DYYB
     Dosage: 5 MG/KG, EVERY 6 WEEKS
     Route: 042
     Dates: start: 20221123
  20. INFLECTRA [Suspect]
     Active Substance: INFLIXIMAB-DYYB
     Dosage: 5 MG/KG, EVERY 6 WEEKS
     Route: 042
     Dates: start: 20230118
  21. CIPRO [Concomitant]
     Active Substance: CIPROFLOXACIN HYDROCHLORIDE
     Dosage: UNK
  22. IRON [Concomitant]
     Active Substance: IRON
     Indication: Supplementation therapy
     Dosage: 1 DF
  23. IRON [Concomitant]
     Active Substance: IRON
     Dosage: UNK
  24. MESALAMINE [Concomitant]
     Active Substance: MESALAMINE
     Dosage: 1 DF, UNKNOWN DOSE
     Route: 048
  25. PENTASA [Concomitant]
     Active Substance: MESALAMINE
     Dosage: UNK
     Route: 054
  26. PREDNISONE [Concomitant]
     Active Substance: PREDNISONE
     Dosage: 1 DF
     Route: 048
     Dates: start: 20191022
  27. PREDNISONE [Concomitant]
     Active Substance: PREDNISONE
     Dosage: 40 MG, 1X/DAY
     Route: 048
     Dates: start: 20191031
  28. PREDNISONE [Concomitant]
     Active Substance: PREDNISONE
     Dosage: UNK
     Route: 048
     Dates: start: 201911
  29. PREDNISONE [Concomitant]
     Active Substance: PREDNISONE
     Dosage: UNK,TAPERING DOSES (A WEEK AFTER 05NOV2019)
     Route: 048
  30. PREDNISONE [Concomitant]
     Active Substance: PREDNISONE
     Dosage: 1 DF
     Route: 048
     Dates: start: 20191105
  31. PREDNISONE [Concomitant]
     Active Substance: PREDNISONE
     Dosage: 1 DF, UNKNOWN DOSE AND THEN TAPERING DOSE A WEEK AFTER 05NOV2019
     Route: 048
     Dates: start: 20191022
  32. MESALAMINE [Concomitant]
     Active Substance: MESALAMINE
     Dosage: 1 DF
  33. CHOLECALCIFEROL [Concomitant]
     Active Substance: CHOLECALCIFEROL
     Dosage: 1 DF
  34. CHOLECALCIFEROL [Concomitant]
     Active Substance: CHOLECALCIFEROL
     Dosage: UNK

REACTIONS (22)
  - Haematochezia [Not Recovered/Not Resolved]
  - Tooth disorder [Unknown]
  - Therapeutic product effect incomplete [Unknown]
  - Blood pressure decreased [Not Recovered/Not Resolved]
  - Condition aggravated [Recovered/Resolved]
  - Dizziness [Not Recovered/Not Resolved]
  - Faecal calprotectin increased [Unknown]
  - Heart rate decreased [Unknown]
  - Labyrinthitis [Not Recovered/Not Resolved]
  - Loss of personal independence in daily activities [Not Recovered/Not Resolved]
  - Malaise [Unknown]
  - Muscle spasms [Not Recovered/Not Resolved]
  - Nausea [Unknown]
  - Urinary tract infection [Not Recovered/Not Resolved]
  - Vertigo positional [Not Recovered/Not Resolved]
  - Oral herpes [Unknown]
  - Fatigue [Unknown]
  - Inappropriate schedule of product administration [Unknown]
  - Off label use [Unknown]
  - Off label use [Unknown]
  - Off label use [Unknown]
  - Intentional product use issue [Unknown]

NARRATIVE: CASE EVENT DATE: 20200402
